FAERS Safety Report 5372167-2 (Version None)
Quarter: 2007Q2

REPORT INFORMATION
  Report Type: 
  Country: None (occurrence: None)
  Receive Date: 20070627
  Receipt Date: 20070621
  Transmission Date: 20071010
  Serious: Yes (Other)
  Sender: FDA-Public Use
  Company Number: A0570321A

PATIENT
  Age: 29 Year
  Sex: Male
  Weight: 88.6 kg

DRUGS (12)
  1. WELLBUTRIN [Suspect]
     Indication: MAJOR DEPRESSION
     Dosage: 450MG PER DAY
     Route: 048
  2. WELLBUTRIN SR [Suspect]
     Indication: MAJOR DEPRESSION
     Dosage: 450MG PER DAY
     Route: 048
  3. PAXIL [Suspect]
     Indication: MAJOR DEPRESSION
     Dosage: 20MG AT NIGHT
     Route: 048
  4. CELEXA [Suspect]
     Indication: MAJOR DEPRESSION
     Dosage: 60MG AT NIGHT
     Route: 065
     Dates: start: 20070511
  5. INDERAL [Concomitant]
     Indication: HYPERTENSION
     Dosage: 120MG PER DAY
  6. KLONOPIN [Concomitant]
  7. PROZAC [Concomitant]
  8. ZOCOR [Concomitant]
  9. CHLOR-TRIMETON [Concomitant]
     Indication: MULTIPLE ALLERGIES
  10. MULTI-VITAMIN [Concomitant]
  11. BENTYL [Concomitant]
  12. PRILOSEC [Concomitant]
     Dosage: 20MG AS REQUIRED

REACTIONS (14)
  - AMNESIA [None]
  - CONFUSIONAL STATE [None]
  - DEPRESSED LEVEL OF CONSCIOUSNESS [None]
  - DEPRESSION [None]
  - DRUG INEFFECTIVE [None]
  - EPISTAXIS [None]
  - FALL [None]
  - HEART RATE INCREASED [None]
  - HYPERVENTILATION [None]
  - LOSS OF CONSCIOUSNESS [None]
  - PANIC ATTACK [None]
  - PARAESTHESIA [None]
  - SYNCOPE [None]
  - TREMOR [None]
